FAERS Safety Report 6355714-3 (Version None)
Quarter: 2009Q3

REPORT INFORMATION
  Report Type: 
  Country: None (occurrence: None)
  Receive Date: 20090910
  Receipt Date: 20090831
  Transmission Date: 20100115
  Serious: Yes (Death)
  Sender: FDA-Public Use
  Company Number: 2009-03581

PATIENT
  Sex: Male

DRUGS (3)
  1. VELCADE [Suspect]
     Indication: MULTIPLE MYELOMA
     Dosage: 1.3 MG/M2,
  2. ADRIABLASTINA (DOXORUBICIN HYDROCHLORIDE) [Concomitant]
  3. DEXAMETHASONE [Concomitant]

REACTIONS (1)
  - DEATH [None]
